FAERS Safety Report 11786779 (Version 3)
Quarter: 2018Q3

REPORT INFORMATION
  Report Type: Report from Study
  Country: US (occurrence: US)
  Receive Date: 20151130
  Receipt Date: 20180802
  Transmission Date: 20181010
  Serious: Yes (Death, Hospitalization, Other)
  Sender: FDA-Public Use
  Company Number: US-ALEXION PHARMACEUTICALS INC-A201504647

PATIENT
  Sex: Male

DRUGS (3)
  1. SOLIRIS [Suspect]
     Active Substance: ECULIZUMAB
     Dosage: UNK
     Route: 042
  2. SOLIRIS [Suspect]
     Active Substance: ECULIZUMAB
     Dosage: 900 MG, UNK
     Route: 042
  3. SOLIRIS [Suspect]
     Active Substance: ECULIZUMAB
     Indication: ATYPICAL HAEMOLYTIC URAEMIC SYNDROME
     Dosage: 900 MG, SINGLE
     Route: 042

REACTIONS (9)
  - Hypoxia [Unknown]
  - Disseminated cryptococcosis [Fatal]
  - Hypotension [Unknown]
  - Vomiting [Unknown]
  - Septic shock [Unknown]
  - Haematocrit decreased [Unknown]
  - Cardiac arrest [Unknown]
  - Peritoneal haemorrhage [Unknown]
  - Tachycardia [Unknown]
